FAERS Safety Report 6256133-0 (Version None)
Quarter: 2009Q3

REPORT INFORMATION
  Report Type: 
  Country: None (occurrence: None)
  Receive Date: 20090706
  Receipt Date: 20090624
  Transmission Date: 20100115
  Serious: Yes (Hospitalization)
  Sender: FDA-Public Use
  Company Number: PHHY2009IT25282

PATIENT
  Sex: Female

DRUGS (1)
  1. TEGRETOL [Suspect]
     Indication: PARTIAL SEIZURES
     Dosage: 600MG DAILY
     Route: 048
     Dates: start: 20080501, end: 20090606

REACTIONS (4)
  - CHEST PAIN [None]
  - HYPERHIDROSIS [None]
  - LEUKOPENIA [None]
  - LOSS OF CONSCIOUSNESS [None]
